FAERS Safety Report 12440126 (Version 1)
Quarter: 2016Q2

REPORT INFORMATION
  Report Type: Spontaneous
  Country: US (occurrence: US)
  Receive Date: 20160606
  Receipt Date: 20160606
  Transmission Date: 20160815
  Serious: No
  Sender: FDA-Public Use
  Company Number: US-AMGEN-USASP2015076563

PATIENT
  Age: 86 Year
  Sex: Male
  Weight: 76.64 kg

DRUGS (7)
  1. PRILOSEC [Concomitant]
     Active Substance: OMEPRAZOLE MAGNESIUM
     Indication: GASTROOESOPHAGEAL REFLUX DISEASE
     Dosage: 20 MG, ONCE DAILY
     Route: 048
  2. CARDIZEM CD [Concomitant]
     Active Substance: DILTIAZEM HYDROCHLORIDE
     Indication: HYPERTENSION
     Dosage: 240 MG, ONCE DAILY
     Route: 048
  3. FLOMAX [Concomitant]
     Active Substance: TAMSULOSIN HYDROCHLORIDE
     Indication: BENIGN PROSTATIC HYPERPLASIA
     Dosage: 0.4 MG, DAILY
     Route: 048
     Dates: start: 201506, end: 201507
  4. PROCRIT [Suspect]
     Active Substance: ERYTHROPOIETIN
     Dosage: 60000 UNIT, ONCE WEEKLY
     Route: 058
     Dates: start: 20150313
  5. PRAVACHOL [Concomitant]
     Active Substance: PRAVASTATIN SODIUM
     Indication: HYPERCHOLESTEROLAEMIA
     Dosage: 40 MG, EVERY OTHER DAY
     Route: 048
  6. AMBIEN [Concomitant]
     Active Substance: ZOLPIDEM TARTRATE
     Indication: BENIGN PROSTATIC HYPERPLASIA
     Dosage: 5 MG, AS NEEDED
     Route: 048
  7. PROCRIT [Suspect]
     Active Substance: ERYTHROPOIETIN
     Indication: MYELODYSPLASTIC SYNDROME
     Dosage: 40000 UNIT, ONCE WEEKLY
     Route: 058
     Dates: start: 20150205, end: 20150313

REACTIONS (6)
  - Drug ineffective [Recovered/Resolved]
  - Contusion [Unknown]
  - Oedema peripheral [Unknown]
  - Rash erythematous [Unknown]
  - Rash generalised [Unknown]
  - Rash maculo-papular [Unknown]

NARRATIVE: CASE EVENT DATE: 2015
